FAERS Safety Report 10201679 (Version 4)
Quarter: 2014Q3

REPORT INFORMATION
  Report Type: Report from Study
  Country: US (occurrence: US)
  Receive Date: 20140528
  Receipt Date: 20140728
  Transmission Date: 20150326
  Serious: Yes (Life-Threatening, Hospitalization)
  Sender: FDA-Public Use
  Company Number: US-ACTELION-A-NJ2013-86980

PATIENT
  Age: 50 Year
  Sex: Male

DRUGS (7)
  1. TRACLEER [Suspect]
     Active Substance: BOSENTAN\BOSENTAN MONOHYDRATE
     Dosage: UNK
     Route: 048
     Dates: start: 2005
  2. VELETRI [Suspect]
     Active Substance: EPOPROSTENOL
     Dosage: 10 NG/KG, PER MIN
     Route: 042
     Dates: start: 20130729
  3. VELETRI [Suspect]
     Active Substance: EPOPROSTENOL
     Indication: PULMONARY ARTERIAL HYPERTENSION
     Dosage: 17 UNK, UNK
     Route: 042
     Dates: start: 20131008
  4. COUMADIN [Concomitant]
     Active Substance: WARFARIN SODIUM
  5. VELETRI [Suspect]
     Active Substance: EPOPROSTENOL
     Dosage: 20 UNK, UNK
     Route: 042
     Dates: start: 20131008
  6. TRACLEER [Suspect]
     Active Substance: BOSENTAN\BOSENTAN MONOHYDRATE
     Indication: PULMONARY ARTERIAL HYPERTENSION
     Dosage: 125 MG, BID
     Route: 048
  7. VELETRI [Suspect]
     Active Substance: EPOPROSTENOL
     Dosage: 8 NG/KG, PER MIN
     Route: 042
     Dates: start: 20130801

REACTIONS (19)
  - Migraine [Recovering/Resolving]
  - Headache [Recovering/Resolving]
  - Craniotomy [Recovering/Resolving]
  - Motor dysfunction [Recovering/Resolving]
  - Pain in extremity [Not Recovered/Not Resolved]
  - Sinus disorder [Unknown]
  - Subdural haematoma [Recovering/Resolving]
  - Catheter site discharge [Unknown]
  - Catheter site pruritus [Unknown]
  - Dizziness [Recovering/Resolving]
  - Procedural complication [Recovering/Resolving]
  - Pain in jaw [Unknown]
  - Nausea [Unknown]
  - Catheter site inflammation [Unknown]
  - Nasal congestion [Unknown]
  - Post procedural haemorrhage [Recovering/Resolving]
  - Intracranial pressure increased [Recovering/Resolving]
  - Head injury [Recovering/Resolving]
  - Vomiting [Unknown]

NARRATIVE: CASE EVENT DATE: 20140317
